FAERS Safety Report 23070059 (Version 2)
Quarter: 2023Q4

REPORT INFORMATION
  Report Type: Spontaneous
  Country: US (occurrence: US)
  Receive Date: 20231016
  Receipt Date: 20231020
  Transmission Date: 20240109
  Serious: No
  Sender: FDA-Public Use
  Company Number: US-SANOFI-01796661

PATIENT
  Age: 77 Year
  Sex: Female

DRUGS (1)
  1. SOLIQUA 100/33 [Suspect]
     Active Substance: INSULIN GLARGINE\LIXISENATIDE
     Indication: Type 2 diabetes mellitus
     Dosage: 38 UNITS QD
     Dates: start: 2022

REACTIONS (5)
  - Blood glucose abnormal [Unknown]
  - Device issue [Unknown]
  - Incorrect dose administered [Unknown]
  - Product dispensing error [Unknown]
  - Product storage error [Unknown]
